FAERS Safety Report 5056241-6 (Version None)
Quarter: 2006Q3

REPORT INFORMATION
  Report Type: 
  Country: None (occurrence: None)
  Receive Date: 20060717
  Receipt Date: 20060704
  Transmission Date: 20061208
  Serious: Yes (Death, Other)
  Sender: FDA-Public Use
  Company Number: GXKR2006TR03784

PATIENT
  Age: 36 Year
  Sex: Female

DRUGS (9)
  1. DEXAMETHASONE [Suspect]
     Indication: LYMPHOMA
     Dosage: 40 MG, QD,
  2. CISPLATIN [Suspect]
     Indication: LYMPHOMA
     Dosage: 100 MG/M2, INFUSION
  3. METHOTREXATE [Suspect]
     Dosage: INTRATHECAL
     Route: 037
  4. ETOPOSIDE (NGX) (ETOPOSIDE)(UNKNOWN) [Suspect]
     Dosage: 150 MG/M2, DAYS 1-5,
  5. CYTARABINE [Suspect]
     Indication: LYMPHOMA
     Dosage: 2 G/MA,A2,
  6. PRIMIDONE [Suspect]
  7. IFOSFAMIDE [Suspect]
     Dosage: 1000 MG/M2
  8. MESNA [Suspect]
     Dosage: 600 MG/M2
  9. IDARUBICIN HCL [Suspect]
     Dosage: 10 MG/M2, DAYS 1-2; 5MG/M2

REACTIONS (14)
  - APNOEA [None]
  - BLOOD BILIRUBIN INCREASED [None]
  - BLOOD CREATININE INCREASED [None]
  - BLOOD PRESSURE INCREASED [None]
  - BLOOD URIC ACID INCREASED [None]
  - CONVULSION [None]
  - DISEASE PROGRESSION [None]
  - GENERAL PHYSICAL HEALTH DETERIORATION [None]
  - HAEMODIALYSIS [None]
  - LIVER FUNCTION TEST ABNORMAL [None]
  - PAPILLOEDEMA [None]
  - PLATELET COUNT DECREASED [None]
  - RENAL DISORDER [None]
  - REVERSIBLE POSTERIOR LEUKOENCEPHALOPATHY SYNDROME [None]
